FAERS Safety Report 21043669 (Version 4)
Quarter: 2022Q3

REPORT INFORMATION
  Report Type: Spontaneous
  Country: JP (occurrence: JP)
  Receive Date: 20220705
  Receipt Date: 20220907
  Transmission Date: 20221026
  Serious: Yes (Other)
  Sender: FDA-Public Use
  Company Number: JP-UCBSA-2022035936

PATIENT
  Age: 26 Year
  Sex: Male

DRUGS (8)
  1. VIMPAT [Suspect]
     Active Substance: LACOSAMIDE
     Indication: Partial seizures
     Dosage: 100 MILLIGRAM 1 DAY
     Route: 048
     Dates: start: 201906
  2. VIMPAT [Suspect]
     Active Substance: LACOSAMIDE
     Dosage: 200 MILLIGRAM 12 HOURS
     Route: 048
     Dates: start: 202001
  3. VIMPAT [Suspect]
     Active Substance: LACOSAMIDE
     Dosage: 400 MILLIGRAM
     Dates: start: 202002
  4. VIMPAT [Suspect]
     Active Substance: LACOSAMIDE
     Dosage: 400 MILLIGRAM
     Dates: start: 202003
  5. LEVETIRACETAM [Suspect]
     Active Substance: LEVETIRACETAM
     Indication: Partial seizures
     Dosage: 500 MILLIGRAM 12 HOURS
     Route: 048
     Dates: start: 202001, end: 202002
  6. PERAMPANEL [Suspect]
     Active Substance: PERAMPANEL
     Indication: Partial seizures
     Dosage: 2 MILLIGRAM
  7. LAMOTRIGINE [Concomitant]
     Active Substance: LAMOTRIGINE
     Indication: Seizure
     Dosage: 150 MILLIGRAM 12 HOURS
     Dates: start: 202002
  8. CLOBAZAM [Concomitant]
     Active Substance: CLOBAZAM
     Indication: Seizure
     Dosage: 10 MILLIGRAM 12 HOURS
     Dates: start: 202003

REACTIONS (7)
  - Simple partial seizures [Recovering/Resolving]
  - Seizure [Recovering/Resolving]
  - Impulsive behaviour [Recovered/Resolved]
  - Dizziness [Recovering/Resolving]
  - Somnolence [Recovering/Resolving]
  - Therapeutic product effect incomplete [Unknown]
  - Intentional overdose [Unknown]

NARRATIVE: CASE EVENT DATE: 20200201
